FAERS Safety Report 7073714-5 (Version None)
Quarter: 2010Q4

REPORT INFORMATION
  Report Type: 
  Country: None (occurrence: None)
  Receive Date: 20101029
  Receipt Date: 20100803
  Transmission Date: 20110411
  Serious: No
  Sender: FDA-Public Use
  Company Number: A0873771A

PATIENT
  Sex: Female

DRUGS (2)
  1. ADVAIR DISKUS 100/50 [Suspect]
     Indication: CHRONIC OBSTRUCTIVE PULMONARY DISEASE
     Route: 055
  2. OXYGEN [Suspect]
     Route: 055

REACTIONS (4)
  - CROUP INFECTIOUS [None]
  - DRUG ADMINISTRATION ERROR [None]
  - DYSPHONIA [None]
  - MEMORY IMPAIRMENT [None]
